FAERS Safety Report 14306258 (Version 5)
Quarter: 2018Q1

REPORT INFORMATION
  Report Type: Report from Study
  Country: CH (occurrence: CH)
  Receive Date: 20171219
  Receipt Date: 20180328
  Transmission Date: 20180509
  Serious: Yes (Hospitalization)
  Sender: FDA-Public Use
  Company Number: CH-AMGEN-CHECT2017184347

PATIENT
  Age: 68 Year
  Sex: Female
  Weight: 88.3 kg

DRUGS (13)
  1. TALIMOGENE LAHERPAREPVEC [Suspect]
     Active Substance: TALIMOGENE LAHERPAREPVEC
     Indication: MALIGNANT MELANOMA
     Dosage: UNK
     Route: 026
     Dates: start: 20170213, end: 20170618
  2. DIPROPHOS [Concomitant]
     Active Substance: BETAMETHASONE DIPROPIONATE\BETAMETHASONE SODIUM PHOSPHATE
     Dosage: 1 MG, UNK
     Route: 014
     Dates: start: 20171027, end: 20171027
  3. ESOMEPRAZOLE [Concomitant]
     Active Substance: ESOMEPRAZOLE
     Dosage: 40 MG, UNK
     Route: 048
     Dates: start: 2014
  4. POTASSIUM [Concomitant]
     Active Substance: POTASSIUM
     Dosage: 1 UNK, UNK
     Route: 048
     Dates: start: 20171201, end: 20171206
  5. NACL [Concomitant]
     Active Substance: SODIUM CHLORIDE
     Dosage: 500-1000 ML, UNK
     Route: 042
     Dates: start: 20171129
  6. DERMOVATE [Concomitant]
     Active Substance: CLOBETASOL
     Dosage: 1 UNK, UNK
     Route: 061
     Dates: start: 20171023, end: 20171129
  7. DAFALGAN [Concomitant]
     Active Substance: ACETAMINOPHEN
     Dosage: 1 G, UNK
     Route: 048
     Dates: start: 20170529
  8. PEMBROLIZUMAB. [Suspect]
     Active Substance: PEMBROLIZUMAB
     Indication: MALIGNANT MELANOMA
     Dosage: UNK MG, UNK
     Route: 042
     Dates: start: 20170213, end: 20171113
  9. MONURIL [Concomitant]
     Active Substance: FOSFOMYCIN SODIUM
     Dosage: 1 UNK, UNK
     Route: 048
     Dates: start: 20171107, end: 20171107
  10. PRURI-MED [Concomitant]
     Dosage: 1 UNK, UNK
     Route: 061
     Dates: start: 20170327, end: 20171129
  11. PREDNISONE. [Concomitant]
     Active Substance: PREDNISONE
     Dosage: 60-80 MG, UNK
     Route: 048
     Dates: start: 20171222, end: 20180107
  12. IRBESARTAN. [Concomitant]
     Active Substance: IRBESARTAN
     Dosage: 1 UNK, UNK
     Route: 048
     Dates: start: 2014, end: 20171129
  13. ELOCOM [Concomitant]
     Active Substance: MOMETASONE FUROATE
     Dosage: 1 UNK, UNK
     Route: 061
     Dates: start: 20170327, end: 20171129

REACTIONS (2)
  - Nervous system disorder [Recovered/Resolved]
  - Pulmonary embolism [Not Recovered/Not Resolved]

NARRATIVE: CASE EVENT DATE: 20171208
